FAERS Safety Report 5490248-X (Version None)
Quarter: 2007Q4

REPORT INFORMATION
  Report Type: 
  Country: None (occurrence: None)
  Receive Date: 20071018
  Receipt Date: 20071009
  Transmission Date: 20080405
  Serious: Yes (Hospitalization)
  Sender: FDA-Public Use
  Company Number: US-BAXTER-2007BH008237

PATIENT
  Age: 38 Year
  Sex: Male
  Weight: 58 kg

DRUGS (3)
  1. FEIBA VH IMMUNO [Suspect]
     Indication: FACTOR VIII DEFICIENCY
     Dosage: DOSE UNIT:UNITS PER KILOGRAM
     Route: 042
     Dates: start: 20070910, end: 20070910
  2. NON-NARCOTIC ANALGESIC [Concomitant]
     Indication: ANALGESIA
     Dosage: DOSE UNIT:UNKNOWN
     Route: 065
  3. TYLENOL (CAPLET) [Concomitant]
     Indication: DRUG USE FOR UNKNOWN INDICATION
     Dosage: DOSE UNIT:UNKNOWN
     Route: 065

REACTIONS (2)
  - CHILLS [None]
  - PYREXIA [None]
